FAERS Safety Report 17293212 (Version 1)
Quarter: 2020Q1

REPORT INFORMATION
  Report Type: Spontaneous
  Country: US (occurrence: US)
  Receive Date: 20200102
  Receipt Date: 20200102
  Transmission Date: 20200409
  Serious: No
  Sender: FDA-Public Use
  Company Number: None

PATIENT
  Age: 62 Year
  Sex: Male

DRUGS (1)
  1. HCG INJ 10000U [Suspect]
     Active Substance: GONADOTROPHIN, CHORIONIC
     Indication: TESTICULAR FAILURE
     Route: 030
     Dates: start: 201902

REACTIONS (1)
  - Off label use [None]

NARRATIVE: CASE EVENT DATE: 20200102
